FAERS Safety Report 9284682 (Version 1)
Quarter: 2013Q2

REPORT INFORMATION
  Report Type: Report from Study
  Country: MX (occurrence: MX)
  Receive Date: 20130513
  Receipt Date: 20130513
  Transmission Date: 20140414
  Serious: Yes (Other)
  Sender: FDA-Public Use
  Company Number: PHHY2013MX046685

PATIENT
  Age: 84 Year
  Sex: Female

DRUGS (3)
  1. DIOVAN [Suspect]
     Indication: HYPERTENSION
     Dosage: 160 MG, QD (8AM)
     Route: 048
  2. GLUCOPHAGE [Concomitant]
     Indication: PROPHYLAXIS
     Dosage: 2 UKN, UNK
     Dates: start: 2011
  3. BENERVA [Concomitant]
     Indication: EAR DISORDER
     Dosage: 1 UKN, UNK

REACTIONS (4)
  - Hearing impaired [Unknown]
  - Visual impairment [Unknown]
  - Gait disturbance [Unknown]
  - Pain in extremity [Unknown]
